FAERS Safety Report 26071390 (Version 1)
Quarter: 2025Q4

REPORT INFORMATION
  Report Type: Spontaneous
  Country: US (occurrence: US)
  Receive Date: 20251120
  Receipt Date: 20251120
  Transmission Date: 20260118
  Serious: No
  Sender: SEPTODONT
  Company Number: US-SEPTODONT-2025019932

PATIENT
  Age: 42 Year
  Sex: Female

DRUGS (3)
  1. EPINEPHRINE BITARTRATE\LIDOCAINE HYDROCHLORIDE [Suspect]
     Active Substance: EPINEPHRINE BITARTRATE\LIDOCAINE HYDROCHLORIDE
     Indication: Dental local anaesthesia
     Dosage: 3 CARTRIDGES.
     Route: 004
     Dates: start: 20250813
  2. Short Blue 30Ga Needle [Concomitant]
     Indication: Dental local anaesthesia
  3. 27Ga Long Needle [Concomitant]
     Indication: Dental local anaesthesia

REACTIONS (1)
  - Drug ineffective [Unknown]

NARRATIVE: CASE EVENT DATE: 20250813
